FAERS Safety Report 6543119-1 (Version None)
Quarter: 2010Q1

REPORT INFORMATION
  Report Type: 
  Country: None (occurrence: None)
  Receive Date: 20100120
  Receipt Date: 20100114
  Transmission Date: 20100710
  Serious: Yes (Death, Hospitalization, Other)
  Sender: FDA-Public Use
  Company Number: PHHY2010CL02127

PATIENT
  Age: 13 Year
  Sex: Female

DRUGS (9)
  1. CYCLOSPORINE [Suspect]
     Indication: BONE MARROW FAILURE
     Dosage: 10 MG/KG/DAY
  2. GLUCOCORTICOIDS [Suspect]
     Dosage: 7.5 MG/DAY
  3. CONTRACEPTIVES NOS [Suspect]
  4. METHYLPREDNISOLONE [Concomitant]
     Indication: BONE MARROW FAILURE
     Dosage: 5 MG/KG/DAY
  5. PREDNISONE [Concomitant]
     Dosage: 1 MG/KG/DAY
     Route: 048
  6. ANTI-THYMOCYTE GLOBULIN NOS [Concomitant]
  7. ESTROGEN NOS [Concomitant]
     Indication: METRORRHAGIA
     Dosage: 30 G/DAY
     Route: 048
  8. ESTROGEN NOS [Concomitant]
     Dosage: 90 G/DAY
     Route: 048
  9. TRANEXAMIC ACID [Concomitant]
     Indication: METRORRHAGIA

REACTIONS (6)
  - ABDOMINAL PAIN [None]
  - HAEMORRHAGE INTRACRANIAL [None]
  - HEPATIC LESION [None]
  - HYSTERECTOMY [None]
  - PELIOSIS HEPATIS [None]
  - PERITONEAL HAEMORRHAGE [None]
